FAERS Safety Report 12111704 (Version 1)
Quarter: 2016Q1

REPORT INFORMATION
  Report Type: Spontaneous
  Country: US (occurrence: US)
  Receive Date: 20160224
  Receipt Date: 20160224
  Transmission Date: 20160526
  Serious: Yes (Other)
  Sender: FDA-Public Use
  Company Number: US-JAZZ-2015-US-021952

PATIENT
  Age: 55 Year
  Sex: Female
  Weight: 77.98 kg

DRUGS (4)
  1. PRIALT [Suspect]
     Active Substance: ZICONOTIDE ACETATE
     Indication: RADICULITIS BRACHIAL
  2. PRIALT [Suspect]
     Active Substance: ZICONOTIDE ACETATE
     Indication: MIGRAINE
     Dosage: UNK ?G, QH
     Route: 037
     Dates: start: 201503
  3. CYMBALTA [Concomitant]
     Active Substance: DULOXETINE HYDROCHLORIDE
     Dosage: 60 MG, BID
     Route: 048
  4. PANTOPRAZOLE [Concomitant]
     Active Substance: PANTOPRAZOLE SODIUM
     Dosage: 40 MG, BID
     Dates: start: 2005

REACTIONS (7)
  - Unresponsive to stimuli [Unknown]
  - Condition aggravated [None]
  - Dizziness [Unknown]
  - Dyskinesia [Unknown]
  - Hyperhidrosis [Unknown]
  - Malaise [Unknown]
  - Feeling hot [Unknown]

NARRATIVE: CASE EVENT DATE: 20151212
